FAERS Safety Report 7100391-7 (Version None)
Quarter: 2010Q4

REPORT INFORMATION
  Report Type: 
  Country: None (occurrence: None)
  Receive Date: 20101112
  Receipt Date: 20101108
  Transmission Date: 20110411
  Serious: Yes (Hospitalization)
  Sender: FDA-Public Use
  Company Number: US-ABBOTT-10P-163-0684022-00

PATIENT
  Sex: Female
  Weight: 98.972 kg

DRUGS (2)
  1. HUMIRA [Suspect]
     Indication: RHEUMATOID ARTHRITIS
     Dates: start: 20080101, end: 20100101
  2. UNKNOWN ANTIBIOTIC [Concomitant]
     Indication: PNEUMONIA
     Dates: start: 20100101

REACTIONS (3)
  - OXYGEN SATURATION DECREASED [None]
  - PNEUMONIA [None]
  - PYREXIA [None]
